FAERS Safety Report 9073918 (Version 1)
Quarter: 2013Q1

REPORT INFORMATION
  Report Type: Report from Study
  Country: US (occurrence: US)
  Receive Date: 20130129
  Receipt Date: 20130129
  Transmission Date: 20140127
  Serious: Yes (Hospitalization, Other)
  Sender: FDA-Public Use
  Company Number: US-ABBOTT-12P-163-0931966-00

PATIENT
  Age: 86 None
  Sex: Female
  Weight: 71.73 kg

DRUGS (10)
  1. HUMIRA 40 MG/0.8 ML PEN [Suspect]
     Indication: RHEUMATOID ARTHRITIS
     Route: 058
     Dates: start: 2005
  2. CLONIDINE [Concomitant]
     Indication: BLOOD PRESSURE
  3. EXELON [Concomitant]
     Indication: MEMORY IMPAIRMENT
  4. FLUTICASONE [Concomitant]
     Indication: NASAL DISORDER
  5. LOVASTATIN [Concomitant]
     Indication: BLOOD CHOLESTEROL
  6. METHOTREXATE [Concomitant]
     Indication: RHEUMATOID ARTHRITIS
  7. NAMENDA [Concomitant]
     Indication: MEMORY IMPAIRMENT
  8. SYNTHROID [Concomitant]
     Indication: HYPOTHYROIDISM
  9. TRAMADOL [Concomitant]
     Indication: PAIN
  10. FOLIC ACID [Concomitant]
     Indication: VITAMIN SUPPLEMENTATION

REACTIONS (3)
  - Pelvic fracture [Recovering/Resolving]
  - Fall [Recovering/Resolving]
  - Balance disorder [Not Recovered/Not Resolved]
